FAERS Safety Report 4953813-1 (Version None)
Quarter: 2006Q1

REPORT INFORMATION
  Report Type: 
  Country: None (occurrence: None)
  Receive Date: 20060327
  Receipt Date: 20051223
  Transmission Date: 20060701
  Serious: Yes (Life-Threatening, Other)
  Sender: FDA-Public Use
  Company Number: CHWYE263523DEC05

PATIENT
  Age: 50 Year
  Sex: Female

DRUGS (2)
  1. ENBREL [Suspect]
     Indication: RHEUMATOID ARTHRITIS
     Dosage: UNKNOWN
     Route: 058
     Dates: start: 20020701, end: 20051201
  2. METHOTREXATE [Concomitant]
     Route: 065
     Dates: start: 20020601, end: 20051201

REACTIONS (2)
  - NON-SMALL CELL LUNG CANCER METASTATIC [None]
  - PATHOLOGICAL FRACTURE [None]
